FAERS Safety Report 20263373 (Version 3)
Quarter: 2022Q1

REPORT INFORMATION
  Report Type: Report from Study
  Country: GB (occurrence: GB)
  Receive Date: 20211231
  Receipt Date: 20220120
  Transmission Date: 20220423
  Serious: Yes (Hospitalization, Other)
  Sender: FDA-Public Use
  Company Number: GB-TAKEDA-GB201500524

PATIENT
  Age: 19 Year
  Sex: Male

DRUGS (2)
  1. IDURSULFASE [Suspect]
     Active Substance: IDURSULFASE
     Indication: Mucopolysaccharidosis II
     Dosage: 0.5 MILLIGRAM/KILOGRAM, 1/WEEK
     Route: 041
     Dates: start: 20040114
  2. IDURSULFASE [Suspect]
     Active Substance: IDURSULFASE
     Dosage: 0.36 MILLIGRAM/KILOGRAM, Q2WEEKS
     Route: 042
     Dates: start: 20140626, end: 20150224

REACTIONS (2)
  - Tracheostomy [Recovered/Resolved]
  - Tracheostomy malfunction [Recovered/Resolved]

NARRATIVE: CASE EVENT DATE: 20150109
